FAERS Safety Report 7774966-6 (Version None)
Quarter: 2011Q3

REPORT INFORMATION
  Report Type: 
  Country: None (occurrence: None)
  Receive Date: 20110923
  Receipt Date: 20110916
  Transmission Date: 20111222
  Serious: Yes (Other)
  Sender: FDA-Public Use
  Company Number: PHHY2011JP65245

PATIENT
  Age: 34 Year
  Sex: Female

DRUGS (3)
  1. RIFAMPICIN [Suspect]
     Indication: PULMONARY TUBERCULOSIS
     Dosage: 150 MG, UNK
     Route: 048
  2. ISONIAZID [Suspect]
     Indication: PULMONARY TUBERCULOSIS
  3. ETHAMBUTOL HYDROCHLORIDE [Suspect]
     Indication: PULMONARY TUBERCULOSIS

REACTIONS (3)
  - INTRAUTERINE INFECTION [None]
  - PREMATURE LABOUR [None]
  - MATERNAL EXPOSURE DURING PREGNANCY [None]
